FAERS Safety Report 12355231 (Version 2)
Quarter: 2016Q4

REPORT INFORMATION
  Report Type: Spontaneous
  Country: DE (occurrence: DE)
  Receive Date: 20160511
  Receipt Date: 20161021
  Transmission Date: 20170207
  Serious: Yes (Hospitalization)
  Sender: FDA-Public Use
  Company Number: DE-ASTRAZENECA-2016SE49651

PATIENT
  Age: 62 Year
  Sex: Male
  Weight: 122 kg

DRUGS (10)
  1. BYETTA [Concomitant]
     Active Substance: EXENATIDE
     Dates: start: 201503, end: 201506
  2. BYDUREON [Suspect]
     Active Substance: EXENATIDE
     Route: 058
     Dates: start: 201403, end: 201503
  3. NOVONOM [Concomitant]
     Dates: start: 201503, end: 201601
  4. BYETTA [Concomitant]
     Active Substance: EXENATIDE
     Dates: start: 201506
  5. METFORMIN [Concomitant]
     Active Substance: METFORMIN HYDROCHLORIDE
     Dates: start: 201403
  6. NOVONOM [Concomitant]
     Dates: start: 201410
  7. JARDIANCE [Concomitant]
     Active Substance: EMPAGLIFLOZIN
     Dates: start: 201408, end: 201410
  8. METFORMIN [Concomitant]
     Active Substance: METFORMIN HYDROCHLORIDE
     Dates: start: 201203
  9. NOVONOM [Concomitant]
     Dates: start: 201601
  10. METFORMIN [Concomitant]
     Active Substance: METFORMIN HYDROCHLORIDE
     Dates: start: 201009, end: 201203

REACTIONS (1)
  - Benign prostatic hyperplasia [Unknown]

NARRATIVE: CASE EVENT DATE: 201410
